FAERS Safety Report 10103416 (Version 2)
Quarter: 2014Q2

REPORT INFORMATION
  Report Type: Other
  Country: US (occurrence: US)
  Receive Date: 20140424
  Receipt Date: 20140611
  Transmission Date: 20141212
  Serious: Yes (Hospitalization, Other)
  Sender: FDA-Public Use
  Company Number: US-GSKPPD-2014GSK000201

PATIENT
  Age: 41 Year
  Sex: Female
  Weight: 154.36 kg

DRUGS (7)
  1. AVANDIA [Suspect]
     Indication: DIABETES MELLITUS
     Route: 048
     Dates: start: 20040504, end: 20060410
  2. ZOCOR [Concomitant]
  3. ALTACE [Concomitant]
  4. LASIX [Concomitant]
  5. NITROGLYCERIN [Concomitant]
  6. LOPRESSOR [Concomitant]
  7. METOPROLOL [Concomitant]

REACTIONS (2)
  - Cerebrovascular accident [Recovered/Resolved]
  - Chest pain [Recovered/Resolved]
